FAERS Safety Report 13990772 (Version 1)
Quarter: 2017Q3

REPORT INFORMATION
  Report Type: Report from Study
  Country: BR (occurrence: BR)
  Receive Date: 20170920
  Receipt Date: 20170920
  Transmission Date: 20171128
  Serious: Yes (Other)
  Sender: FDA-Public Use
  Company Number: BR-JNJFOC-20170918139

PATIENT
  Age: 57 Year
  Sex: Female

DRUGS (3)
  1. CILOSTAZOL. [Concomitant]
     Active Substance: CILOSTAZOL
     Indication: PROPHYLAXIS
     Route: 065
  2. XARELTO [Suspect]
     Active Substance: RIVAROXABAN
     Indication: THROMBOSIS
     Route: 048
     Dates: start: 201702, end: 20170904
  3. BETAFERON [Suspect]
     Active Substance: INTERFERON BETA-1B
     Indication: MULTIPLE SCLEROSIS
     Route: 065
     Dates: start: 2015

REACTIONS (26)
  - Spinal pain [Recovered/Resolved]
  - Abdominal distension [Unknown]
  - Varicose vein [Not Recovered/Not Resolved]
  - Ear pain [Recovered/Resolved]
  - Nausea [Recovered/Resolved]
  - Gastrointestinal carcinoma [Unknown]
  - Urinary tract infection [Unknown]
  - Paraesthesia [Not Recovered/Not Resolved]
  - Vomiting [Recovered/Resolved]
  - Oropharyngeal pain [Recovered/Resolved]
  - Nephrolithiasis [Not Recovered/Not Resolved]
  - Diarrhoea [Unknown]
  - Flatulence [Not Recovered/Not Resolved]
  - Eye pain [Recovered/Resolved]
  - Thrombosis [Unknown]
  - Suicidal ideation [Recovered/Resolved]
  - Gastrointestinal motility disorder [Not Recovered/Not Resolved]
  - Headache [Recovered/Resolved]
  - Gastrointestinal carcinoma [Unknown]
  - Abdominal pain upper [Recovered/Resolved]
  - Memory impairment [Not Recovered/Not Resolved]
  - Pain in jaw [Recovered/Resolved]
  - Anaemia [Not Recovered/Not Resolved]
  - Headache [Not Recovered/Not Resolved]
  - Gastrointestinal pain [Not Recovered/Not Resolved]
  - Thrombosis [Recovered/Resolved with Sequelae]

NARRATIVE: CASE EVENT DATE: 2015
